FAERS Safety Report 7300061-6 (Version None)
Quarter: 2011Q1

REPORT INFORMATION
  Report Type: 
  Country: None (occurrence: None)
  Receive Date: 20110217
  Receipt Date: 20110207
  Transmission Date: 20110831
  Serious: Yes (Hospitalization, Other)
  Sender: FDA-Public Use
  Company Number: US-ACTELION-A-NJ2011-44297

PATIENT

DRUGS (1)
  1. TRACLEER [Suspect]
     Indication: PULMONARY ARTERIAL HYPERTENSION
     Dosage: 62.5 MG, BID
     Route: 048
     Dates: start: 20110107, end: 20110114

REACTIONS (5)
  - LIVER FUNCTION TEST ABNORMAL [None]
  - LACERATION [None]
  - RENAL FAILURE ACUTE [None]
  - SYNCOPE [None]
  - HYPOVOLAEMIA [None]
